FAERS Safety Report 5644902-7 (Version None)
Quarter: 2008Q1

REPORT INFORMATION
  Report Type: 
  Country: None (occurrence: None)
  Receive Date: 20080229
  Receipt Date: 20071016
  Transmission Date: 20080703
  Serious: No
  Sender: FDA-Public Use
  Company Number: A0687975A

PATIENT
  Age: 57 Year
  Sex: Female

DRUGS (4)
  1. VALTREX [Suspect]
     Dosage: 1G THREE TIMES PER DAY
     Route: 048
     Dates: start: 20071011
  2. PROTONIX [Concomitant]
  3. PAROXETINE HCL [Concomitant]
  4. VITAMINS [Concomitant]

REACTIONS (2)
  - CHILLS [None]
  - INFLUENZA LIKE ILLNESS [None]
